FAERS Safety Report 16053897 (Version 2)
Quarter: 2019Q2

REPORT INFORMATION
  Report Type: Report from Study
  Country: US (occurrence: US)
  Receive Date: 20190308
  Receipt Date: 20190409
  Transmission Date: 20190711
  Serious: Yes (Hospitalization)
  Sender: FDA-Public Use
  Company Number: US-ACTELION-A-NJ2018-171934

PATIENT
  Age: 56 Year
  Sex: Female
  Weight: 82.09 kg

DRUGS (4)
  1. REMODULIN [Suspect]
     Active Substance: TREPROSTINIL
     Indication: PRODUCT USED FOR UNKNOWN INDICATION
     Dosage: 54 NG/KG, UNK
     Route: 042
  2. REMODULIN [Suspect]
     Active Substance: TREPROSTINIL
     Dosage: 64 NG/KG, UNK
     Route: 042
  3. OPSUMIT [Suspect]
     Active Substance: MACITENTAN
     Indication: PULMONARY ARTERIAL HYPERTENSION
     Dosage: 10 MG, QD
     Route: 048
  4. AMLODIPINE [Concomitant]
     Active Substance: AMLODIPINE BESYLATE

REACTIONS (10)
  - Influenza [Recovering/Resolving]
  - Nasopharyngitis [Unknown]
  - Cardiac disorder [Unknown]
  - Pain [Unknown]
  - Cough [Unknown]
  - Device issue [Unknown]
  - Dizziness [Unknown]
  - Catheter management [Recovered/Resolved]
  - Nasal congestion [Unknown]
  - Lung disorder [Unknown]

NARRATIVE: CASE EVENT DATE: 20190225
